FAERS Safety Report 5862680-3 (Version None)
Quarter: 2008Q3

REPORT INFORMATION
  Report Type: 
  Country: None (occurrence: None)
  Receive Date: 20080818
  Receipt Date: 20080618
  Transmission Date: 20090109
  Serious: No
  Sender: FDA-Public Use
  Company Number: WAES 0806USA03834

PATIENT
  Sex: Male

DRUGS (2)
  1. JANUVIA [Suspect]
     Dosage: 100 MG/DAILY/PO : 100 MG/DAILY/PO
     Route: 048
     Dates: start: 20080418, end: 20080604
  2. JANUVIA [Suspect]
     Dosage: 100 MG/DAILY/PO : 100 MG/DAILY/PO
     Route: 048
     Dates: start: 20080611

REACTIONS (2)
  - ADVERSE EVENT [None]
  - WRONG TECHNIQUE IN DRUG USAGE PROCESS [None]
